FAERS Safety Report 4941652-7 (Version None)
Quarter: 2006Q1

REPORT INFORMATION
  Report Type: 
  Country: None (occurrence: None)
  Receive Date: 20060313
  Receipt Date: 20060301
  Transmission Date: 20060701
  Serious: Yes (Hospitalization)
  Sender: FDA-Public Use
  Company Number: US-ROCHE-438275

PATIENT
  Age: 61 Year
  Sex: Female

DRUGS (18)
  1. VALIUM [Suspect]
     Indication: ANXIETY
     Route: 048
     Dates: start: 20020615
  2. VALIUM [Suspect]
     Route: 048
     Dates: start: 20051212, end: 20051212
  3. STUDY MEDICATION [Suspect]
     Dosage: DRUG REPORTED AS: CEP-25608 OR ORAVESCENT (FENTANYL CITRATE).
     Route: 002
     Dates: start: 20050629, end: 20051212
  4. OXYCODONE [Suspect]
     Indication: DRUG USE FOR UNKNOWN INDICATION
     Route: 048
     Dates: start: 20050511, end: 20050729
  5. OXYCODONE [Suspect]
     Route: 048
     Dates: start: 20050511
  6. IMITREX [Concomitant]
     Dates: start: 19950615
  7. NEOSPORIN [Concomitant]
     Dates: start: 20050921
  8. 1 CONCOMITANT DRUG [Concomitant]
     Dosage: DRUG REPORTED AS ^KEPLEX^.
     Dates: start: 20050921
  9. PROZAC [Concomitant]
     Dates: start: 20050921
  10. FERROUS SULFATE TAB [Concomitant]
     Dates: start: 20051212
  11. DESYREL [Concomitant]
     Dates: start: 20051214
  12. LEVAQUIN [Concomitant]
     Dates: start: 20051216
  13. ROXICODONE [Concomitant]
     Dates: start: 20050729
  14. POTASSIUM [Concomitant]
     Dates: start: 20020615
  15. ZANTAC [Concomitant]
     Dates: start: 19950615
  16. TRAVATAN [Concomitant]
     Dates: start: 19600615
  17. ALPHAGAN [Concomitant]
     Dates: start: 19600615
  18. SENNA CONCENTRATE [Concomitant]
     Dates: start: 20020615

REACTIONS (2)
  - DETOXIFICATION [None]
  - DIVERTICULITIS [None]
